FAERS Safety Report 15952177 (Version 1)
Quarter: 2019Q1

REPORT INFORMATION
  Report Type: Spontaneous
  Country: US (occurrence: US)
  Receive Date: 20190212
  Receipt Date: 20190212
  Transmission Date: 20190417
  Serious: No
  Sender: FDA-Public Use
  Company Number: US-PFIZER INC-2017128339

PATIENT
  Age: 51 Year
  Sex: Female

DRUGS (5)
  1. LYRICA [Suspect]
     Active Substance: PREGABALIN
     Dosage: 75 MG, UNK (6 TIMES/ DAY)
  2. GABAPENTIN. [Concomitant]
     Active Substance: GABAPENTIN
     Dosage: 100 MG, 3X/DAY
  3. AMITRIPTYLINE [Concomitant]
     Active Substance: AMITRIPTYLINE
     Dosage: 60 MG, 1X/DAY (OD AT BEDTIME)
  4. LYRICA [Suspect]
     Active Substance: PREGABALIN
     Indication: SMALL FIBRE NEUROPATHY
     Dosage: 75 MG, DAILY (ONE TAB SIX TIMES DAILY)
  5. LYRICA [Suspect]
     Active Substance: PREGABALIN
     Dosage: 4 DF, 2X/DAY

REACTIONS (1)
  - Withdrawal syndrome [Unknown]
